FAERS Safety Report 13162429 (Version 3)
Quarter: 2017Q1

REPORT INFORMATION
  Report Type: Report from Study
  Country: CN (occurrence: CN)
  Receive Date: 20170130
  Receipt Date: 20170330
  Transmission Date: 20170428
  Serious: Yes (Death, Hospitalization)
  Sender: FDA-Public Use
  Company Number: CN-ROCHE-1881807

PATIENT
  Age: 61 Year
  Sex: Male
  Weight: 71.5 kg

DRUGS (9)
  1. MORPHINE [Concomitant]
     Active Substance: MORPHINE
     Route: 065
     Dates: start: 20170117, end: 20170122
  2. AMIODARONE [Concomitant]
     Active Substance: AMIODARONE
     Route: 065
     Dates: start: 20170120
  3. XUESAITONG (TCM) [Concomitant]
     Indication: THROMBOSIS PROPHYLAXIS
     Dosage: XUESAITONG SOFT MICELLE(TCM)
     Route: 065
     Dates: start: 20170118, end: 20170118
  4. ATEZOLIZUMAB [Suspect]
     Active Substance: ATEZOLIZUMAB
     Indication: NON-SMALL CELL LUNG CANCER
     Route: 042
     Dates: start: 20161227
  5. MEDIUM AND LONG CHAIN FAT EMULSION INJECTION [Concomitant]
     Active Substance: LIPOSYN (R) INTRAVENOUS FAT EMULSION
     Route: 065
     Dates: start: 20170120, end: 20170122
  6. DOXOFYLLINE [Concomitant]
     Active Substance: DOXOFYLLINE
     Indication: ASTHMA
     Dosage: DOXOFYLLINE MICELLES
     Route: 065
     Dates: start: 20170117, end: 20170117
  7. DIGOXIN. [Concomitant]
     Active Substance: DIGOXIN
     Route: 065
     Dates: start: 20170118, end: 20170118
  8. AMBROXOL HYDROCHLORIDE/GLUCOSE [Concomitant]
     Route: 065
     Dates: start: 20170121, end: 20170122
  9. CEDILANID (DESLANOSIDE) [Concomitant]
     Route: 065
     Dates: start: 20170117, end: 20170117

REACTIONS (1)
  - Lung infection [Fatal]

NARRATIVE: CASE EVENT DATE: 20161231
